FAERS Safety Report 10013065 (Version 1)
Quarter: 2014Q1

REPORT INFORMATION
  Report Type: Spontaneous
  Country: US (occurrence: US)
  Receive Date: 20140314
  Receipt Date: 20140314
  Transmission Date: 20141002
  Serious: No
  Sender: FDA-Public Use
  Company Number: US-PFIZER INC-2014072341

PATIENT
  Age: 52 Year
  Sex: Female
  Weight: 56.69 kg

DRUGS (3)
  1. CHANTIX [Suspect]
     Indication: SMOKING CESSATION THERAPY
     Dosage: 0.5 MG, 1X/DAY
     Dates: start: 201402
  2. CHANTIX [Suspect]
     Dosage: 1 MG, 2X/DAY
     Dates: start: 2014
  3. CITALOPRAM [Concomitant]
     Indication: ANXIETY
     Dosage: UNK

REACTIONS (2)
  - Drug intolerance [Unknown]
  - Abdominal discomfort [Unknown]
